FAERS Safety Report 6805027-8 (Version None)
Quarter: 2010Q2

REPORT INFORMATION
  Report Type: 
  Country: None (occurrence: None)
  Receive Date: 20100628
  Receipt Date: 20070810
  Transmission Date: 20101027
  Serious: No
  Sender: FDA-Public Use
  Company Number: US-PFIZER INC-2007066970

PATIENT
  Sex: Female
  Weight: 67.59 kg

DRUGS (5)
  1. XALATAN [Suspect]
     Indication: GLAUCOMA
     Dates: start: 20010101
  2. ATENOLOL [Concomitant]
  3. VYTORIN [Concomitant]
  4. ISOSORBIDE [Concomitant]
  5. LUNESTA [Concomitant]
     Indication: SLEEP DISORDER
     Dates: start: 20060101

REACTIONS (2)
  - ERYTHEMA OF EYELID [None]
  - OCULAR VASCULAR DISORDER [None]
